FAERS Safety Report 10019018 (Version 1)
Quarter: 2014Q1

REPORT INFORMATION
  Report Type: Spontaneous
  Country: US (occurrence: None)
  Receive Date: 20140314
  Receipt Date: 20140314
  Transmission Date: 20141002
  Serious: Yes (Hospitalization)
  Sender: FDA-Public Use
  Company Number: None

PATIENT
  Age: 2 Year
  Sex: Female
  Weight: 14.8 kg

DRUGS (1)
  1. VINBLASTINE [Suspect]
     Indication: LANGERHANS^ CELL HISTIOCYTOSIS
     Dosage: VINBLASTINE 3.7 MG IVP WEEKLY INTRAVENOUS
     Route: 042
     Dates: start: 20131002, end: 20140203

REACTIONS (4)
  - Ileus paralytic [None]
  - Hyponatraemia [None]
  - Hypertension [None]
  - Alopecia [None]
